FAERS Safety Report 5288705-4 (Version None)
Quarter: 2007Q2

REPORT INFORMATION
  Report Type: 
  Country: None (occurrence: None)
  Receive Date: 20070405
  Receipt Date: 20070326
  Transmission Date: 20071010
  Serious: Yes (Disabling)
  Sender: FDA-Public Use
  Company Number: 2007GB00560

PATIENT
  Age: 23695 Day
  Sex: Female

DRUGS (2)
  1. ARIMIDEX [Suspect]
     Indication: BREAST CANCER
     Route: 048
     Dates: start: 20031112, end: 20070320
  2. FOSOMAX [Concomitant]
     Indication: OSTEOPENIA
     Route: 048

REACTIONS (1)
  - MACULAR DEGENERATION [None]
